FAERS Safety Report 24906110 (Version 1)
Quarter: 2025Q1

REPORT INFORMATION
  Report Type: Spontaneous
  Country: CN (occurrence: CN)
  Receive Date: 20250130
  Receipt Date: 20250130
  Transmission Date: 20250408
  Serious: Yes (Other)
  Sender: NOVARTIS
  Company Number: CN-002147023-NVSC2025CN014478

PATIENT
  Sex: Male
  Weight: 3.3 kg

DRUGS (4)
  1. LETROZOLE [Suspect]
     Active Substance: LETROZOLE
     Indication: Foetal exposure during pregnancy
     Route: 064
     Dates: start: 2021
  2. PROGESTERONE [Suspect]
     Active Substance: PROGESTERONE
     Indication: Foetal exposure during pregnancy
     Route: 064
     Dates: start: 2021
  3. PROGESTERONE [Suspect]
     Active Substance: PROGESTERONE
     Route: 064
  4. CEFUROXIME SODIUM [Suspect]
     Active Substance: CEFUROXIME SODIUM
     Indication: Foetal exposure during pregnancy
     Route: 064

REACTIONS (2)
  - Premature baby [Unknown]
  - Foetal exposure timing unspecified [Unknown]
